FAERS Safety Report 5895154-4 (Version None)
Quarter: 2008Q3

REPORT INFORMATION
  Report Type: 
  Country: None (occurrence: None)
  Receive Date: 20080924
  Receipt Date: 20080911
  Transmission Date: 20090109
  Serious: Yes (Hospitalization, Other)
  Sender: FDA-Public Use
  Company Number: US-PFIZER INC-2008077568

PATIENT
  Sex: Female
  Weight: 81.6 kg

DRUGS (5)
  1. DILANTIN [Interacting]
     Indication: GRAND MAL CONVULSION
  2. PRIMIDONE [Suspect]
     Indication: CONVULSION
  3. ANTIEPILEPTICS [Suspect]
     Indication: CONVULSION
  4. DRUG, UNSPECIFIED [Interacting]
     Indication: KIDNEY INFECTION
  5. PHENOBARBITAL TAB [Concomitant]

REACTIONS (13)
  - CONVULSION [None]
  - DRUG INEFFECTIVE [None]
  - DRUG INTERACTION [None]
  - FEELING ABNORMAL [None]
  - GASTRIC DISORDER [None]
  - GRAND MAL CONVULSION [None]
  - HALLUCINATION, VISUAL [None]
  - HYPOGLYCAEMIA [None]
  - HYPOPHAGIA [None]
  - ILL-DEFINED DISORDER [None]
  - KIDNEY INFECTION [None]
  - MALAISE [None]
  - NERVOUS SYSTEM DISORDER [None]
